FAERS Safety Report 4521093-7 (Version None)
Quarter: 2004Q4

REPORT INFORMATION
  Report Type: 
  Country: None (occurrence: None)
  Receive Date: 20041203
  Receipt Date: 20041119
  Transmission Date: 20050328
  Serious: Yes (Death)
  Sender: FDA-Public Use
  Company Number: SUSI-2004-00789

PATIENT
  Age: 87 Year
  Sex: Male

DRUGS (8)
  1. PENTASA [Suspect]
     Dosage: 500 MG, ORAL
     Route: 048
     Dates: end: 20031123
  2. DEPAKENE [Suspect]
     Dosage: 750 MG, ORAL
     Route: 048
     Dates: end: 20031123
  3. DAFLON (DIOSMIN) [Suspect]
     Dosage: 2 TABLETS, ORAL
     Route: 048
     Dates: end: 20031123
  4. LASIX [Suspect]
     Dosage: 40 MG, ORAL
     Route: 048
     Dates: end: 20031123
  5. MOTILIUM [Suspect]
     Dosage: 30 MG, ORAL
     Route: 048
     Dates: end: 20031123
  6. KARDEGIC/SCH/(LYSINE ASPIRIN) [Suspect]
     Dosage: 160 MG, ORAL; SEE IMAGE
     Route: 048
     Dates: end: 20031122
  7. STILNOX/SCH/(ZOLPIDEM TARTRATE) [Suspect]
     Dosage: 1 TABLET/DAY, ORAL
     Route: 048
     Dates: end: 20031123
  8. XATRAL LP [Suspect]
     Dosage: 5 MG, ORAL
     Route: 048
     Dates: end: 20041123

REACTIONS (7)
  - FALL [None]
  - HAEMOGLOBIN DECREASED [None]
  - INJURY [None]
  - LOSS OF CONSCIOUSNESS [None]
  - MALAISE [None]
  - SUBARACHNOID HAEMORRHAGE [None]
  - WOUND [None]
